FAERS Safety Report 8857167 (Version 1)
Quarter: 2012Q4

REPORT INFORMATION
  Report Type: 
  Country: AR (occurrence: AR)
  Receive Date: 20121024
  Receipt Date: 20121024
  Transmission Date: 20130627
  Serious: Yes (Other)
  Sender: FDA-Public Use
  Company Number: PHHY2012AR095278

PATIENT
  Age: 83 Year
  Sex: Female

DRUGS (1)
  1. EXELON PATCH [Suspect]
     Indication: AMNESIA
     Dosage: 9.5 mg, 24 h (patch 10 cm2)
     Route: 062

REACTIONS (3)
  - Tibia fracture [Recovering/Resolving]
  - Fibula fracture [Recovering/Resolving]
  - Fall [Recovering/Resolving]
